FAERS Safety Report 7609751-9 (Version None)
Quarter: 2011Q3

REPORT INFORMATION
  Report Type: 
  Country: None (occurrence: None)
  Receive Date: 20110714
  Receipt Date: 20110708
  Transmission Date: 20111222
  Serious: Yes (Other)
  Sender: FDA-Public Use
  Company Number: NL-ABBOTT-11P-114-0714373-00

PATIENT
  Sex: Female
  Weight: 72 kg

DRUGS (6)
  1. ESOMEPRAZOLE MAGNESIUM [Concomitant]
     Indication: GASTRIC DISORDER
     Route: 048
  2. ZOLIDERM [Concomitant]
     Indication: INSOMNIA
     Route: 048
     Dates: start: 20050101
  3. HYDROXOCOBALAMINE [Concomitant]
     Indication: VITAMIN B12 DEFICIENCY
     Dosage: 500MCG/ML
     Route: 030
     Dates: start: 19950101
  4. ESOMEPRAZOLE MAGNESIUM [Concomitant]
     Indication: PROPHYLAXIS
  5. METHOTREXATE [Concomitant]
     Indication: CROHN'S DISEASE
     Route: 048
     Dates: start: 20030101
  6. HUMIRA [Suspect]
     Indication: CROHN'S DISEASE
     Route: 058
     Dates: start: 20110303

REACTIONS (9)
  - NAUSEA [None]
  - HEADACHE [None]
  - MOOD SWINGS [None]
  - PAIN [None]
  - ANXIETY [None]
  - GLOSSODYNIA [None]
  - FLATULENCE [None]
  - SWOLLEN TONGUE [None]
  - ABDOMINAL DISCOMFORT [None]
